FAERS Safety Report 24804140 (Version 1)
Quarter: 2025Q1

REPORT INFORMATION
  Report Type: Spontaneous
  Country: US (occurrence: US)
  Receive Date: 20250103
  Receipt Date: 20250103
  Transmission Date: 20250409
  Serious: Yes (Other)
  Sender: MYLAN
  Company Number: US-MYLANLABS-2024M1117835

PATIENT
  Age: 52 Year
  Sex: Male

DRUGS (15)
  1. BUDESONIDE [Suspect]
     Active Substance: BUDESONIDE
     Indication: Eosinophilic oesophagitis
     Route: 065
  2. BUDESONIDE [Suspect]
     Active Substance: BUDESONIDE
     Indication: Eosinophilic gastritis
  3. BUDESONIDE [Suspect]
     Active Substance: BUDESONIDE
     Indication: Gastroenteritis eosinophilic
  4. BUDESONIDE [Suspect]
     Active Substance: BUDESONIDE
     Indication: Gastrooesophageal reflux disease
  5. BUDESONIDE [Suspect]
     Active Substance: BUDESONIDE
     Indication: Eosinophilia
  6. PANTOPRAZOLE [Suspect]
     Active Substance: PANTOPRAZOLE
     Indication: Gastrooesophageal reflux disease
     Route: 065
  7. PANTOPRAZOLE [Suspect]
     Active Substance: PANTOPRAZOLE
     Indication: Eosinophilic oesophagitis
  8. PANTOPRAZOLE [Suspect]
     Active Substance: PANTOPRAZOLE
     Indication: Eosinophilic gastritis
  9. PANTOPRAZOLE [Suspect]
     Active Substance: PANTOPRAZOLE
     Indication: Gastroenteritis eosinophilic
  10. PANTOPRAZOLE [Suspect]
     Active Substance: PANTOPRAZOLE
     Indication: Eosinophilia
  11. FAMOTIDINE [Concomitant]
     Active Substance: FAMOTIDINE
     Indication: Eosinophilic oesophagitis
     Route: 065
  12. FAMOTIDINE [Concomitant]
     Active Substance: FAMOTIDINE
     Indication: Eosinophilic gastritis
  13. FAMOTIDINE [Concomitant]
     Active Substance: FAMOTIDINE
     Indication: Gastroenteritis eosinophilic
  14. FAMOTIDINE [Concomitant]
     Active Substance: FAMOTIDINE
     Indication: Gastrooesophageal reflux disease
  15. FAMOTIDINE [Concomitant]
     Active Substance: FAMOTIDINE
     Indication: Eosinophilia

REACTIONS (1)
  - Drug ineffective [Unknown]
